FAERS Safety Report 23015352 (Version 1)
Quarter: 2023Q4

REPORT INFORMATION
  Report Type: Spontaneous
  Country: US (occurrence: None)
  Receive Date: 20231002
  Receipt Date: 20231002
  Transmission Date: 20240110
  Serious: Yes (Hospitalization)
  Sender: FDA-Public Use
  Company Number: None

PATIENT
  Sex: Male

DRUGS (14)
  1. ZARXIO [Suspect]
     Active Substance: FILGRASTIM-SNDZ
     Indication: Liver transplant
     Dosage: OTHER STRENGTH : 480MCG/0.8ML;?OTHER QUANTITY : 480MCG/0.8ML;?FREQUENCY : EVERY OTHER WEEK;?
     Route: 058
  2. ARANESP [Concomitant]
     Active Substance: DARBEPOETIN ALFA
  3. ASPIRIN CHW [Concomitant]
  4. CHLORTHALIDONE [Concomitant]
     Active Substance: CHLORTHALIDONE
  5. FUROSEMIDE [Concomitant]
     Active Substance: FUROSEMIDE
  6. LOKELMA PAK [Concomitant]
  7. MAGNESIUM [Concomitant]
     Active Substance: MAGNESIUM
  8. VITAMINS [Concomitant]
     Active Substance: VITAMINS
  9. MYCOPHENOLIC ACID [Concomitant]
     Active Substance: MYCOPHENOLIC ACID
  10. NIFEDIPINE [Concomitant]
     Active Substance: NIFEDIPINE
  11. SODIUM BICAR [Concomitant]
  12. TACROLIMUS [Concomitant]
     Active Substance: TACROLIMUS
  13. THIAMINE HYDROCHLORIDE [Concomitant]
     Active Substance: THIAMINE HYDROCHLORIDE
  14. VITAMIN D [Concomitant]
     Active Substance: VITAMIN D NOS

REACTIONS (2)
  - Pneumonia [None]
  - Rhinovirus infection [None]
